FAERS Safety Report 8903069 (Version 1)
Quarter: 2012Q4

REPORT INFORMATION
  Report Type: 
  Country: US (occurrence: US)
  Receive Date: 20121113
  Receipt Date: 20121113
  Transmission Date: 20130627
  Serious: Yes (Other)
  Sender: FDA-Public Use
  Company Number: US-UCBSA-070498

PATIENT
  Sex: Female

DRUGS (1)
  1. VIMPAT [Suspect]
     Indication: CONVULSION

REACTIONS (6)
  - Cerebrovascular accident [Unknown]
  - Convulsion [Unknown]
  - Immobile [Unknown]
  - Fall [Unknown]
  - Vomiting [Unknown]
  - Lymphadenopathy [Unknown]
